FAERS Safety Report 5136175-9 (Version None)
Quarter: 2006Q4

REPORT INFORMATION
  Report Type: 
  Country: None (occurrence: None)
  Receive Date: 20061027
  Receipt Date: 20061017
  Transmission Date: 20070319
  Serious: Yes (Hospitalization, Other)
  Sender: FDA-Public Use
  Company Number: US-JNJFOC-20061004388

PATIENT
  Sex: Female
  Weight: 63.5 kg

DRUGS (15)
  1. REMICADE [Suspect]
     Indication: RHEUMATOID ARTHRITIS
     Dosage: THERAPY DURATION: ABOUT 1 YEAR
     Route: 042
  2. FENTANYL CITRATE [Suspect]
     Route: 062
  3. FENTANYL CITRATE [Suspect]
     Route: 062
  4. FENTANYL CITRATE [Suspect]
     Indication: RHEUMATOID ARTHRITIS
     Route: 062
  5. NERVE BLOCK [Suspect]
     Indication: COMPLEX REGIONAL PAIN SYNDROME
  6. CYMBALTA [Concomitant]
     Indication: DEPRESSION
     Route: 048
  7. HYDROCHLOROTHIAZIDE [Concomitant]
     Indication: HYPERTENSION
     Route: 048
  8. MICARDIS [Concomitant]
     Route: 048
  9. MICARDIS [Concomitant]
     Indication: HYPERTENSION
     Route: 048
  10. LASIX [Concomitant]
     Indication: HYPERTENSION
     Route: 048
  11. SYNTHROID [Concomitant]
     Indication: HYPOTHYROIDISM
     Route: 048
  12. K-DUR 10 [Concomitant]
     Route: 048
  13. K-DUR 10 [Concomitant]
     Route: 048
  14. K-DUR 10 [Concomitant]
     Indication: PROPHYLAXIS
     Route: 048
  15. FAMOTIDINE [Concomitant]
     Indication: GASTROOESOPHAGEAL REFLUX DISEASE
     Route: 048

REACTIONS (7)
  - ANAEMIA [None]
  - APPLICATION SITE REACTION [None]
  - BLOOD POTASSIUM DECREASED [None]
  - HYPERTENSION [None]
  - HYPOTENSION [None]
  - INFECTION [None]
  - SEPSIS [None]
